FAERS Safety Report 4636585-X (Version None)
Quarter: 2005Q2

REPORT INFORMATION
  Report Type: 
  Country: None (occurrence: None)
  Receive Date: 20050414
  Receipt Date: 20050329
  Transmission Date: 20051028
  Serious: Yes (Hospitalization)
  Sender: FDA-Public Use
  Company Number: 2005-BP-03313NB

PATIENT
  Age: 64 Year
  Sex: Male

DRUGS (6)
  1. MOBIC [Suspect]
     Indication: BACK PAIN
     Dosage: 10 MG (10 MG) PO
     Route: 048
     Dates: start: 20050218, end: 20050220
  2. LANSOPRAZOLE [Suspect]
     Indication: GASTRIC ULCER
     Dosage: 15 MG (15 MG) PO
     Route: 048
     Dates: start: 20050218, end: 20050220
  3. COLCHICINE (COLCHICINE) (TA) [Suspect]
     Indication: GOUT
     Dosage: 0.5 MG (0.5 MG) PO
     Route: 048
     Dates: start: 20050217, end: 20050222
  4. WARFARIN SODIUM [Suspect]
     Indication: PULMONARY EMBOLISM
     Dosage: 3 MG (1 MG) PO
     Route: 048
     Dates: start: 20050223
  5. HEPARIN (AMV) [Concomitant]
  6. MUCOSTA (REBAMIPIDE) (TA) [Concomitant]

REACTIONS (2)
  - ACTIVATED PARTIAL THROMBOPLASTIN TIME PROLONGED [None]
  - HEPATIC FUNCTION ABNORMAL [None]
